FAERS Safety Report 6554992-5 (Version None)
Quarter: 2010Q1

REPORT INFORMATION
  Report Type: 
  Country: None (occurrence: None)
  Receive Date: 20100126
  Receipt Date: 20100126
  Transmission Date: 20100710
  Serious: No
  Sender: FDA-Public Use
  Company Number: None

PATIENT
  Age: 32 Year
  Sex: Female
  Weight: 55.7924 kg

DRUGS (2)
  1. NEXIUM [Suspect]
     Indication: GASTRITIS
     Dosage: 40MG BID PO APPROX 5 YEARS
     Route: 048
  2. NEXIUM [Suspect]
     Indication: GASTROOESOPHAGEAL REFLUX DISEASE
     Dosage: 40MG BID PO APPROX 5 YEARS
     Route: 048

REACTIONS (1)
  - BARRETT'S OESOPHAGUS [None]
